FAERS Safety Report 6591504-4 (Version None)
Quarter: 2010Q1

REPORT INFORMATION
  Report Type: 
  Country: None (occurrence: None)
  Receive Date: 20100219
  Receipt Date: 20100211
  Transmission Date: 20100710
  Serious: Yes (Other)
  Sender: FDA-Public Use
  Company Number: US-AMGEN-QUU390223

PATIENT
  Sex: Female
  Weight: 104.4 kg

DRUGS (1)
  1. NPLATE [Suspect]
     Indication: IDIOPATHIC THROMBOCYTOPENIC PURPURA
     Route: 030
     Dates: start: 20090401

REACTIONS (2)
  - LUNG INFILTRATION [None]
  - LUNG NEOPLASM [None]
